FAERS Safety Report 14575783 (Version 1)
Quarter: 2018Q1

REPORT INFORMATION
  Report Type: Spontaneous
  Country: ES (occurrence: ES)
  Receive Date: 20180227
  Receipt Date: 20180227
  Transmission Date: 20180509
  Serious: Yes (Hospitalization)
  Sender: FDA-Public Use
  Company Number: ES-009507513-1802ESP009903

PATIENT
  Age: 65 Year
  Sex: Male

DRUGS (11)
  1. ROCURONIUM BROMIDE. [Suspect]
     Active Substance: ROCURONIUM BROMIDE
     Dosage: 50MG, UNK
  2. PROPOFOL. [Concomitant]
     Active Substance: PROPOFOL
     Dosage: 120 MG, UNK
  3. NITROGLYCERIN. [Concomitant]
     Active Substance: NITROGLYCERIN
  4. MIDAZOLAM [Concomitant]
     Active Substance: MIDAZOLAM HYDROCHLORIDE
     Indication: PREMEDICATION
     Dosage: 1 MG, UNK
  5. BISOPROLOL [Concomitant]
     Active Substance: BISOPROLOL
     Indication: MYOCARDIAL ISCHAEMIA
  6. FENTANYL. [Concomitant]
     Active Substance: FENTANYL
     Dosage: 150 MICROGRAM, UNK
  7. ASPIRIN. [Concomitant]
     Active Substance: ASPIRIN
     Indication: MYOCARDIAL ISCHAEMIA
  8. ETOMIDATE. [Concomitant]
     Active Substance: ETOMIDATE
     Dosage: 18MG, UNK
  9. FENTANYL. [Concomitant]
     Active Substance: FENTANYL
     Indication: INDUCTION OF ANAESTHESIA
     Dosage: 150 MICROGRAM, UNK
  10. METRONIDAZOLE. [Concomitant]
     Active Substance: METRONIDAZOLE
     Indication: PROPHYLAXIS
     Dosage: 500MG, UNK
  11. VALSARTAN. [Concomitant]
     Active Substance: VALSARTAN
     Indication: MYOCARDIAL ISCHAEMIA

REACTIONS (1)
  - Kounis syndrome [Recovered/Resolved]
